FAERS Safety Report 9447756 (Version 3)
Quarter: 2013Q3

REPORT INFORMATION
  Report Type: Spontaneous
  Country: JP (occurrence: None)
  Receive Date: 20130805
  Receipt Date: 20130815
  Transmission Date: 20140515
  Serious: Yes (Other)
  Sender: FDA-Public Use
  Company Number: SYM-2013-07712

PATIENT
  Age: 81 Year
  Sex: Male

DRUGS (12)
  1. HERBESSER [Suspect]
     Indication: PRINZMETAL ANGINA
     Route: 048
  2. ISOSORBIDE DINITRATE [Suspect]
     Indication: PRINZMETAL ANGINA
     Route: 062
  3. ISOSORBIDE DINITRATE [Suspect]
     Indication: MYOCARDIAL INFARCTION
     Route: 062
  4. NIFEDIPINE [Suspect]
     Indication: PRINZMETAL ANGINA
     Route: 048
  5. NIFEDIPINE [Suspect]
     Route: 048
  6. GLYCERYL TRINITRATE [Suspect]
     Indication: PRINZMETAL ANGINA
     Route: 048
  7. ISOSORBIDE MONONITRATE [Suspect]
     Indication: PRINZMETAL ANGINA
     Route: 048
  8. MEVALOTIN (PRAVASTATIN SODIUM) (PRAVASTATIN SODIUM) [Concomitant]
  9. NICORANDIL [Suspect]
     Indication: PRINZMETAL ANGINA
     Route: 048
  10. BAYASPRIN [Concomitant]
  11. VALSARTAN [Suspect]
     Indication: PRINZMETAL ANGINA
     Route: 048
  12. VALSARTAN [Suspect]
     Indication: MYOCARDIAL INFARCTION
     Route: 048

REACTIONS (9)
  - Dyspnoea [None]
  - Pallor [None]
  - Blood pressure decreased [None]
  - Chest pain [None]
  - Medication error [None]
  - Hyperhidrosis [None]
  - Bradycardia [None]
  - Cardiovascular insufficiency [None]
  - Angina pectoris [None]
